FAERS Safety Report 23858231 (Version 1)
Quarter: 2024Q2

REPORT INFORMATION
  Report Type: Spontaneous
  Country: GB (occurrence: GB)
  Receive Date: 20240515
  Receipt Date: 20240515
  Transmission Date: 20240716
  Serious: Yes (Other)
  Sender: FDA-Public Use
  Company Number: None

PATIENT
  Age: 77 Year
  Sex: Female
  Weight: 70 kg

DRUGS (16)
  1. DOXYCYCLINE [Suspect]
     Active Substance: DOXYCYCLINE
     Indication: Sinusitis
     Dosage: UNK
     Route: 048
     Dates: start: 20240212, end: 20240217
  2. TETRACYCLINE [Suspect]
     Active Substance: TETRACYCLINE
     Dosage: 250 MG
     Dates: start: 20240507
  3. ALENDRONIC ACID [Concomitant]
     Active Substance: ALENDRONIC ACID
     Dosage: 1 DF, WEEKLY
     Dates: start: 20231228
  4. BENDROFLUMETHIAZIDE [Concomitant]
     Active Substance: BENDROFLUMETHIAZIDE
     Dosage: 1 DF, 1X/DAY IN THE MORNING
     Dates: start: 20230201
  5. BETAMETHASONE VALERATE [Concomitant]
     Active Substance: BETAMETHASONE VALERATE
     Dosage: AS DIRECTED BY DERMATOLOGY
     Dates: start: 20240504
  6. CANDESARTAN [Concomitant]
     Active Substance: CANDESARTAN
     Dosage: 1 DF, 1X/DAY
     Dates: start: 20231123
  7. CLARITHROMYCIN [Concomitant]
     Active Substance: CLARITHROMYCIN
     Dosage: 1 DF, 2X/DAY
     Dates: start: 20240403, end: 20240410
  8. DERMOL [BENZALKONIUM CHLORIDE;CHLORHEXIDINE HYDROCHLORIDE;ISOPROPYL MY [Concomitant]
     Dosage: USE AS DIRECTED
     Dates: start: 20230201
  9. FOLIC ACID [Concomitant]
     Active Substance: FOLIC ACID
     Dosage: 1 DF, 1X/DAY
     Dates: start: 20240305
  10. ISOPROPYL MYRISTATE\MINERAL OIL [Concomitant]
     Active Substance: ISOPROPYL MYRISTATE\MINERAL OIL
     Dosage: USE AS DIRECTED
     Dates: start: 20230201
  11. LANSOPRAZOLE [Concomitant]
     Active Substance: LANSOPRAZOLE
     Dosage: 1 DF, 1X/DAY
     Dates: start: 20230201
  12. MOMETASONE [Concomitant]
     Active Substance: MOMETASONE
     Dosage: 2 PUFFS EACH NOSTRIL
     Dates: start: 20230201
  13. NYSTATIN [Concomitant]
     Active Substance: NYSTATIN
     Dosage: 1 ML, 4X/DAY
     Dates: start: 20240312, end: 20240319
  14. SERETIDE [Concomitant]
     Active Substance: FLUTICASONE PROPIONATE\SALMETEROL XINAFOATE
     Dosage: 2 DF, 2X/DAY
     Dates: start: 20230201
  15. THEICAL D3 [Concomitant]
     Dosage: 1 DF, 1X/DAY
     Dates: start: 20230201
  16. VENTOLIN [Concomitant]
     Active Substance: ALBUTEROL SULFATE
     Dosage: TWO PUFFS FOUR TIMES A DAY AS REQUIRED
     Dates: start: 20230201

REACTIONS (3)
  - Intracranial pressure increased [Recovering/Resolving]
  - Vision blurred [Unknown]
  - Optic neuritis [Unknown]

NARRATIVE: CASE EVENT DATE: 20240212
